FAERS Safety Report 6844530-1 (Version None)
Quarter: 2010Q3

REPORT INFORMATION
  Report Type: 
  Country: None (occurrence: None)
  Receive Date: 20100715
  Receipt Date: 20100701
  Transmission Date: 20110219
  Serious: Yes (Hospitalization)
  Sender: FDA-Public Use
  Company Number: PHFR2010GB01189

PATIENT
  Sex: Female

DRUGS (2)
  1. CLOZARIL [Suspect]
     Indication: SCHIZOPHRENIA
     Dosage: UNK
     Dates: start: 20010701
  2. CLOZARIL [Suspect]
     Dosage: UNK
     Dates: end: 20100619

REACTIONS (13)
  - AGITATION [None]
  - ANTIPSYCHOTIC DRUG LEVEL INCREASED [None]
  - BLADDER CATHETERISATION [None]
  - BLOOD CREATINE PHOSPHOKINASE INCREASED [None]
  - CYANOSIS [None]
  - MALAISE [None]
  - MENTAL IMPAIRMENT [None]
  - NEUROLEPTIC MALIGNANT SYNDROME [None]
  - OXYGEN SATURATION DECREASED [None]
  - RENAL FAILURE [None]
  - RHABDOMYOLYSIS [None]
  - URINARY RETENTION [None]
  - URINARY TRACT INFECTION [None]
